FAERS Safety Report 14490807 (Version 1)
Quarter: 2018Q1

REPORT INFORMATION
  Report Type: Spontaneous
  Country: US (occurrence: US)
  Receive Date: 20180206
  Receipt Date: 20180206
  Transmission Date: 20180509
  Serious: Yes (Hospitalization, Other)
  Sender: FDA-Public Use
  Company Number: US-STRIDES ARCOLAB LIMITED-2018SP000797

PATIENT
  Age: 4 Year
  Sex: Female

DRUGS (2)
  1. VANCOMYCIN [Suspect]
     Active Substance: VANCOMYCIN
     Dosage: 26 MG/KG (470 MG), EVERY 8 HRS
     Route: 042
  2. VANCOMYCIN [Suspect]
     Active Substance: VANCOMYCIN
     Indication: STAPHYLOCOCCAL INFECTION
     Dosage: 20 MG/KG (360 MG) EVERY 6 H WITH GOAL TROUGH CONCENTRATION OF 15-20 ?G/ML.
     Route: 042

REACTIONS (5)
  - Pancytopenia [Recovered/Resolved]
  - Pyrexia [Recovered/Resolved]
  - Decreased activity [Unknown]
  - Rash maculo-papular [Unknown]
  - Decreased appetite [Unknown]
